FAERS Safety Report 9902849 (Version 3)
Quarter: 2014Q2

REPORT INFORMATION
  Report Type: Spontaneous
  Country: TR (occurrence: TR)
  Receive Date: 20140217
  Receipt Date: 20140521
  Transmission Date: 20141212
  Serious: Yes (Disabling)
  Sender: FDA-Public Use
  Company Number: ALCN2014TR001044

PATIENT
  Age: 62 Year
  Sex: Male

DRUGS (7)
  1. VIGAMOX [Suspect]
     Indication: POSTOPERATIVE CARE
     Dosage: 0.1 CM3, ONCE/SINGLE
     Route: 065
     Dates: start: 20131223
  2. VIGAMOX [Suspect]
     Indication: OFF LABEL USE
     Dosage: UNK
     Route: 047
     Dates: start: 20131223
  3. VIGAMOX [Suspect]
     Indication: PROPHYLAXIS
  4. NEVANAC [Suspect]
     Indication: POSTOPERATIVE CARE
     Dosage: 1 DF, QD
     Route: 047
     Dates: start: 20131223
  5. NEVANAC [Suspect]
     Dosage: 4 DF, QD
     Dates: start: 20131223
  6. PRED FORTE [Suspect]
     Indication: POSTOPERATIVE CARE
     Dosage: UNK
     Route: 047
     Dates: start: 20131223
  7. PRED FORTE [Suspect]
     Dosage: 4 DF, QD
     Dates: start: 20131223

REACTIONS (5)
  - Glaucoma [Recovered/Resolved]
  - Intraocular pressure increased [Recovered/Resolved]
  - Iris atrophy [Recovered/Resolved]
  - Corneal oedema [Recovered/Resolved]
  - Off label use [Unknown]
